FAERS Safety Report 19285416 (Version 2)
Quarter: 2021Q3

REPORT INFORMATION
  Report Type: Report from Study
  Country: US (occurrence: US)
  Receive Date: 20210521
  Receipt Date: 20210930
  Transmission Date: 20211014
  Serious: Yes (Hospitalization)
  Sender: FDA-Public Use
  Company Number: US-VERTEX PHARMACEUTICALS-2021-007779

PATIENT
  Age: 47 Year
  Sex: Female

DRUGS (25)
  1. SPIRIVA [Concomitant]
     Active Substance: TIOTROPIUM BROMIDE MONOHYDRATE
  2. BIAXIN [Concomitant]
     Active Substance: CLARITHROMYCIN
  3. LANTUS [Concomitant]
     Active Substance: INSULIN GLARGINE
  4. IRON [Concomitant]
     Active Substance: IRON
  5. NOVOLOG [Concomitant]
     Active Substance: INSULIN ASPART
  6. POLYETHYLENE GLYCOL [MACROGOL] [Concomitant]
     Active Substance: POLYETHYLENE GLYCOLS
  7. FUROSEMIDE. [Concomitant]
     Active Substance: FUROSEMIDE
  8. MIRAPEX [Concomitant]
     Active Substance: PRAMIPEXOLE DIHYDROCHLORIDE
  9. FLONASE [Concomitant]
     Active Substance: FLUTICASONE PROPIONATE
  10. ULORIC [Concomitant]
     Active Substance: FEBUXOSTAT
  11. COLACE [Concomitant]
     Active Substance: DOCUSATE SODIUM
  12. LINZESS [Concomitant]
     Active Substance: LINACLOTIDE
  13. MONTELUKAST [Concomitant]
     Active Substance: MONTELUKAST SODIUM
  14. HYDROCHLOROTHIAZIDE. [Concomitant]
     Active Substance: HYDROCHLOROTHIAZIDE
  15. VITAMIN D [COLECALCIFEROL] [Concomitant]
     Active Substance: CHOLECALCIFEROL
  16. LISINOPRIL. [Concomitant]
     Active Substance: LISINOPRIL
  17. ADVAIR HFA [Concomitant]
     Active Substance: FLUTICASONE PROPIONATE\SALMETEROL XINAFOATE
  18. TRIKAFTA [Suspect]
     Active Substance: ELEXACAFTOR\IVACAFTOR\TEZACAFTOR
     Indication: CYSTIC FIBROSIS
     Dosage: 2 TABS (100 MG ELEXACAFTOR/ 50 MG TEZACAFTOR/ 75 MG IVACAFTOR) AM; 1 TAB (150MG IVACAFTOR) PM
     Route: 048
     Dates: start: 20191127
  19. PERTZYE [Concomitant]
     Active Substance: PANCRELIPASE AMYLASE\PANCRELIPASE LIPASE\PANCRELIPASE PROTEASE
  20. AZITHROMYCIN ANHYDROUS. [Concomitant]
     Active Substance: AZITHROMYCIN ANHYDROUS
  21. FOSAMAX [Concomitant]
     Active Substance: ALENDRONATE SODIUM
  22. POTASSIUM [Concomitant]
     Active Substance: POTASSIUM
  23. ZYRTEC [Concomitant]
     Active Substance: CETIRIZINE HYDROCHLORIDE
  24. PROTONIX [OMEPRAZOLE] [Concomitant]
     Active Substance: OMEPRAZOLE
  25. CREON [Concomitant]
     Active Substance: PANCRELIPASE AMYLASE\PANCRELIPASE LIPASE\PANCRELIPASE PROTEASE

REACTIONS (9)
  - Blood creatinine increased [Not Recovered/Not Resolved]
  - Peroneal nerve palsy [Not Recovered/Not Resolved]
  - Neuropathy peripheral [Not Recovered/Not Resolved]
  - Platelet count decreased [Unknown]
  - Musculoskeletal discomfort [Unknown]
  - Pneumonia [Recovering/Resolving]
  - Infective pulmonary exacerbation of cystic fibrosis [Recovered/Resolved]
  - Influenza [Recovering/Resolving]
  - Renal impairment [Recovering/Resolving]

NARRATIVE: CASE EVENT DATE: 2021
